FAERS Safety Report 6301820-9 (Version None)
Quarter: 2009Q3

REPORT INFORMATION
  Report Type: 
  Country: None (occurrence: None)
  Receive Date: 20090720
  Receipt Date: 20090720
  Transmission Date: 20100115
  Serious: Yes (Life-Threatening, Hospitalization, Other)
  Sender: FDA-Public Use
  Company Number: 2009000256

PATIENT
  Age: 77 Year
  Sex: Male

DRUGS (16)
  1. ERLOTINIB (ERLOTINIB) (TABLET) (ERLOTINIB) [Suspect]
     Indication: LUNG SQUAMOUS CELL CARCINOMA STAGE UNSPECIFIED
     Dosage: (150 MG, QD), ORAL
     Route: 048
     Dates: start: 20081126, end: 20081219
  2. AMARYL [Suspect]
     Indication: LUNG SQUAMOUS CELL CARCINOMA STAGE UNSPECIFIED
     Dosage: (4 MG)
  3. ASPIRIN [Suspect]
  4. PANALDINE (TICLOPIDINE HYDROCHLORIDE) [Suspect]
  5. LEVOFLOXACIN [Suspect]
  6. NICORANDIL (NICORANDIL) [Concomitant]
  7. ADALAT [Concomitant]
  8. METFORMIN HCL [Concomitant]
  9. BASEN (VOGLIBOSE) [Concomitant]
  10. LASIX [Concomitant]
  11. ALDACTONE [Concomitant]
  12. ISOSORBIDE DINITRATE [Concomitant]
  13. ACTOS [Concomitant]
  14. MAGMITT [Concomitant]
  15. FAMOTIDINE [Concomitant]
  16. FERROMIA (FERROUS CITRATE) [Concomitant]

REACTIONS (6)
  - DRY SKIN [None]
  - GASTRIC ULCER HAEMORRHAGE [None]
  - HYPOGLYCAEMIA [None]
  - LIVER DISORDER [None]
  - PARONYCHIA [None]
  - PYREXIA [None]
